FAERS Safety Report 5472513-5 (Version None)
Quarter: 2007Q3

REPORT INFORMATION
  Report Type: 
  Country: None (occurrence: None)
  Receive Date: 20070927
  Receipt Date: 20070918
  Transmission Date: 20080115
  Serious: Yes (Death)
  Sender: FDA-Public Use
  Company Number: E3810-01263-SPO-ES

PATIENT
  Age: 74 Year
  Sex: Male
  Weight: 60 kg

DRUGS (10)
  1. RABEPRAZOLE SODIUM [Suspect]
     Indication: PROPHYLAXIS
     Dosage: 20 MG, 1 IN 1 D, ORAL
     Route: 048
  2. DURAGESIC-100 [Concomitant]
  3. HALOPERIDOL [Concomitant]
  4. CELEBREX [Concomitant]
  5. DACORTIN (PREDNISONE) [Concomitant]
  6. DISTRANEURINE (CLOMETHIAZOLE EDISILATE) [Concomitant]
  7. MEGAPREN [Concomitant]
  8. CARDIL (DILTIAZEM HYDROCHLORIDE) [Concomitant]
  9. OPONAF (LACTITOL) [Concomitant]
  10. DILUTOL (TORASEMIDE) [Concomitant]

REACTIONS (2)
  - METASTASES TO BONE [None]
  - PROSTATE CANCER [None]
